FAERS Safety Report 8278451-7 (Version None)
Quarter: 2012Q2

REPORT INFORMATION
  Report Type: 
  Country: None (occurrence: None)
  Receive Date: 20120412
  Receipt Date: 20111229
  Transmission Date: 20120825
  Serious: No
  Sender: FDA-Public Use
  Company Number: US-ASTRAZENECA-2012SE00073

PATIENT
  Age: 92 Year
  Sex: Female

DRUGS (3)
  1. NEXIUM [Suspect]
     Route: 048
  2. UNSPECIFIED STATIN MEDICATION [Concomitant]
     Indication: BLOOD CHOLESTEROL INCREASED
  3. NEXIUM [Suspect]
     Indication: GASTROOESOPHAGEAL REFLUX DISEASE
     Route: 048

REACTIONS (2)
  - MUSCULAR WEAKNESS [None]
  - OFF LABEL USE [None]
